FAERS Safety Report 7296280-8 (Version None)
Quarter: 2011Q1

REPORT INFORMATION
  Report Type: 
  Country: None (occurrence: None)
  Receive Date: 20110204
  Receipt Date: 20110120
  Transmission Date: 20110831
  Serious: Yes (Death)
  Sender: FDA-Public Use
  Company Number: EU-2011-10004

PATIENT
  Age: 72 Year
  Sex: Male

DRUGS (1)
  1. SAMSCA [Suspect]
     Dosage: 15 MG MILLIGRAM(S); ORAL
     Route: 048
     Dates: start: 20101217, end: 20101220

REACTIONS (2)
  - BRONCHIAL CARCINOMA [None]
  - CONDITION AGGRAVATED [None]
